FAERS Safety Report 20203342 (Version 1)
Quarter: 2021Q4

REPORT INFORMATION
  Report Type: Other
  Country: RO (occurrence: None)
  Receive Date: 20211218
  Receipt Date: 20211218
  Transmission Date: 20220304
  Serious: Yes (Hospitalization, Other)
  Sender: FDA-Public Use
  Company Number: RO-ROCHE-2791380

PATIENT
  Sex: Female
  Weight: 65 kg

DRUGS (4)
  1. ALECENSA [Suspect]
     Active Substance: ALECTINIB HYDROCHLORIDE
     Indication: Lung carcinoma cell type unspecified stage IV
     Route: 048
     Dates: start: 20200611
  2. ALECENSA [Suspect]
     Active Substance: ALECTINIB HYDROCHLORIDE
     Indication: Metastases to central nervous system
  3. ALECENSA [Suspect]
     Active Substance: ALECTINIB HYDROCHLORIDE
     Indication: Metastases to bone
  4. CRIZOTINIB [Concomitant]
     Active Substance: CRIZOTINIB

REACTIONS (3)
  - Spinal compression fracture [Unknown]
  - Paralysis [Unknown]
  - Myopia [Unknown]
